FAERS Safety Report 10488543 (Version 1)
Quarter: 2014Q4

REPORT INFORMATION
  Report Type: Spontaneous
  Country: US (occurrence: None)
  Receive Date: 20141001
  Receipt Date: 20141001
  Transmission Date: 20150528
  Serious: Yes (Other)
  Sender: FDA-Public Use
  Company Number: None

PATIENT
  Age: 29 Year
  Sex: Female
  Weight: 58.97 kg

DRUGS (2)
  1. CYMBALTA [Suspect]
     Active Substance: DULOXETINE HYDROCHLORIDE
     Indication: DEPRESSION
     Dosage: 1 PILL TWICE DAILY TAKEN BY MOUTH
     Route: 048
     Dates: start: 20130301, end: 20140901
  2. CYMBALTA [Suspect]
     Active Substance: DULOXETINE HYDROCHLORIDE
     Dosage: 1 PILL TWICE DAILY TAKEN BY MOUTH
     Route: 048
     Dates: start: 20130301, end: 20140901

REACTIONS (14)
  - Diarrhoea [None]
  - Chills [None]
  - Insomnia [None]
  - Withdrawal syndrome [None]
  - Dizziness [None]
  - Pruritus [None]
  - Impaired driving ability [None]
  - Nausea [None]
  - Thought blocking [None]
  - Tremor [None]
  - Restless legs syndrome [None]
  - Paraesthesia [None]
  - Balance disorder [None]
  - Drug dose omission [None]

NARRATIVE: CASE EVENT DATE: 20140925
